FAERS Safety Report 21269546 (Version 1)
Quarter: 2022Q3

REPORT INFORMATION
  Report Type: Spontaneous
  Country: US (occurrence: None)
  Receive Date: 20220829
  Receipt Date: 20220829
  Transmission Date: 20221026
  Serious: No
  Sender: FDA-Public Use
  Company Number: None

PATIENT
  Age: 66 Year
  Sex: Female
  Weight: 99 kg

DRUGS (1)
  1. NICORETTE [Suspect]
     Active Substance: NICOTINE
     Indication: Smoking cessation therapy
     Dosage: OTHER QUANTITY : 1 PIECE;?OTHER FREQUENCY : EVERY 2 HOURS;?
     Route: 048

REACTIONS (3)
  - Drug dependence [None]
  - Urine odour abnormal [None]
  - Product formulation issue [None]

NARRATIVE: CASE EVENT DATE: 20220705
